FAERS Safety Report 26202344 (Version 1)
Quarter: 2025Q4

REPORT INFORMATION
  Report Type: Spontaneous
  Country: IN (occurrence: IN)
  Receive Date: 20251226
  Receipt Date: 20251226
  Transmission Date: 20260118
  Serious: Yes (Death, Other)
  Sender: CIPLA
  Company Number: IN-CIPLA LTD.-2025IN16219

PATIENT

DRUGS (6)
  1. AMLODIPINE BESYLATE [Suspect]
     Active Substance: AMLODIPINE BESYLATE
     Indication: Hypertension
     Dosage: 5 MILLIGRAM, QD (1 TABLET ONCE IN A DAY)
     Route: 048
     Dates: start: 1995
  2. AMLODIPINE BESYLATE [Suspect]
     Active Substance: AMLODIPINE BESYLATE
     Dosage: 5 MILLIGRAM, QD (1 TABLET ONCE IN A DAY)
     Route: 048
     Dates: end: 20250830
  3. ASPIRIN\CLOPIDOGREL [Suspect]
     Active Substance: ASPIRIN\CLOPIDOGREL
     Indication: Anticoagulant therapy
     Dosage: 1 DOSAGE FORM, QD (1 TABLET ONCE IN A DAY)
     Route: 048
     Dates: start: 1995
  4. ASPIRIN\CLOPIDOGREL [Suspect]
     Active Substance: ASPIRIN\CLOPIDOGREL
     Dosage: 1 DOSAGE FORM, QD (1 TABLET ONCE IN A DAY)
     Route: 048
     Dates: end: 20250830
  5. GLYBURIDE\METFORMIN [Suspect]
     Active Substance: GLYBURIDE\METFORMIN
     Indication: Diabetes mellitus
     Dosage: 1 DOSAGE FORM, QD (1 TABLET ONCE IN A DAY)
     Route: 048
     Dates: start: 1995
  6. GLYBURIDE\METFORMIN [Suspect]
     Active Substance: GLYBURIDE\METFORMIN
     Dosage: 1 DOSAGE FORM, QD (1 TABLET ONCE IN A DAY)
     Route: 048
     Dates: end: 20250830

REACTIONS (1)
  - Myocardial infarction [Fatal]

NARRATIVE: CASE EVENT DATE: 20250830
